FAERS Safety Report 6774732-4 (Version None)
Quarter: 2010Q2

REPORT INFORMATION
  Report Type: 
  Country: None (occurrence: None)
  Receive Date: 20100616
  Receipt Date: 20100616
  Transmission Date: 20101027
  Serious: Yes (Hospitalization)
  Sender: FDA-Public Use
  Company Number: None

PATIENT
  Age: 54 Year
  Sex: Female
  Weight: 49.8957 kg

DRUGS (1)
  1. MYCOPHENOLATE 500 MG TEVA [Suspect]
     Indication: CONNECTIVE TISSUE DISORDER
     Dosage: TWO TABLETS TWICE A DAY PO
     Route: 048
     Dates: start: 20100421, end: 20100523

REACTIONS (1)
  - HERPES ZOSTER [None]
